FAERS Safety Report 9352577 (Version 2)
Quarter: 2013Q3

REPORT INFORMATION
  Report Type: Spontaneous
  Country: CH (occurrence: CH)
  Receive Date: 20130618
  Receipt Date: 20130708
  Transmission Date: 20140515
  Serious: Yes (Hospitalization, Other)
  Sender: FDA-Public Use
  Company Number: CH-ABBOTT-13X-151-1104200-00

PATIENT
  Age: 26 Year
  Sex: Male

DRUGS (2)
  1. KLACID ONE [Suspect]
     Indication: ACUTE TONSILLITIS
     Route: 048
     Dates: start: 201210, end: 201210
  2. ASPEGIC [Concomitant]
     Indication: PRODUCT USED FOR UNKNOWN INDICATION
     Route: 048

REACTIONS (2)
  - Hypersensitivity vasculitis [Recovering/Resolving]
  - Scar [None]
